FAERS Safety Report 22119041 (Version 1)
Quarter: 2023Q1

REPORT INFORMATION
  Report Type: Report from Study
  Country: US (occurrence: None)
  Receive Date: 20230321
  Receipt Date: 20230321
  Transmission Date: 20230418
  Serious: Yes (Death)
  Sender: FDA-Public Use
  Company Number: US-ROCHE-3313197

PATIENT

DRUGS (2)
  1. ATEZOLIZUMAB [Suspect]
     Active Substance: ATEZOLIZUMAB
     Indication: Neoplasm
     Dosage: OVER 60 MINUTES ON DAY 1?DATE OF LAST DOSE: 26/OCT/2017?DATE OFF STUDY: 14/JUN/2018
     Route: 041
     Dates: start: 20170626
  2. BEVACIZUMAB [Suspect]
     Active Substance: BEVACIZUMAB
     Indication: Neoplasm
     Dosage: OVER 60 MINUTES ON DAY 1?DATE OF LAST DOSE: 26/OCT/2017?DATE OFF STUDY: 14/JUN/2018
     Route: 042
     Dates: start: 20170626

REACTIONS (1)
  - Disease progression [Fatal]
